FAERS Safety Report 8511525-1 (Version None)
Quarter: 2012Q3

REPORT INFORMATION
  Report Type: 
  Country: None (occurrence: None)
  Receive Date: 20120710
  Receipt Date: 20120710
  Transmission Date: 20120928
  Serious: Yes (Hospitalization)
  Sender: FDA-Public Use
  Company Number: None

PATIENT
  Age: 82 Year
  Sex: Female
  Weight: 62.1428 kg

DRUGS (2)
  1. CITALOPRAM HYDROBROMIDE [Suspect]
     Indication: ANXIETY
     Dosage: 40MG QAM AND 80MG QHS DAILY PO
     Route: 048
  2. CITALOPRAM HYDROBROMIDE [Suspect]
     Indication: NERVOUSNESS
     Dosage: 40MG QAM AND 80MG QHS DAILY PO
     Route: 048

REACTIONS (11)
  - BLISTER [None]
  - BALANCE DISORDER [None]
  - HEADACHE [None]
  - DYSPHONIA [None]
  - OEDEMA PERIPHERAL [None]
  - ERYTHEMA [None]
  - COORDINATION ABNORMAL [None]
  - JOINT SWELLING [None]
  - CONFUSIONAL STATE [None]
  - HALLUCINATION, VISUAL [None]
  - CONTUSION [None]
